FAERS Safety Report 5741546-3 (Version None)
Quarter: 2008Q2

REPORT INFORMATION
  Report Type: 
  Country: None (occurrence: None)
  Receive Date: 20080519
  Receipt Date: 20080401
  Transmission Date: 20081010
  Serious: Yes (Death, Hospitalization, Other)
  Sender: FDA-Public Use
  Company Number: US-BAYER-200810695BCC

PATIENT
  Age: 72 Year
  Sex: Female
  Weight: 64 kg

DRUGS (22)
  1. ASPIRIN [Suspect]
     Indication: MYOCARDIAL INFARCTION
     Dosage: TOTAL DAILY DOSE: 325 MG  UNIT DOSE: 325 MG
     Route: 048
     Dates: start: 20040818, end: 20040818
  2. ASPIRIN [Suspect]
     Indication: CHEST PAIN
     Dosage: UNIT DOSE: 81 MG
     Route: 048
     Dates: start: 20040818, end: 20040818
  3. INTEGRILIN [Suspect]
     Indication: CORONARY ARTERIAL STENT INSERTION
     Route: 040
     Dates: start: 20040818, end: 20040818
  4. INTEGRILIN [Suspect]
     Route: 040
     Dates: start: 20040818, end: 20040818
  5. INTEGRILIN [Suspect]
     Route: 041
     Dates: start: 20040818, end: 20040818
  6. LOVENOX [Suspect]
     Indication: MYOCARDIAL INFARCTION
     Route: 058
     Dates: start: 20040818, end: 20040818
  7. TENECTEPLASE [Suspect]
     Indication: MYOCARDIAL INFARCTION
     Route: 042
     Dates: start: 20040818, end: 20040818
  8. PLAVIX [Suspect]
     Indication: MYOCARDIAL INFARCTION
     Route: 048
     Dates: start: 20040818, end: 20040818
  9. HEPARIN [Suspect]
     Indication: DRUG USE FOR UNKNOWN INDICATION
     Route: 065
     Dates: start: 20040818, end: 20040818
  10. SODIUM CHLORIDE [Concomitant]
     Indication: MYOCARDIAL INFARCTION
     Route: 040
     Dates: start: 20040818
  11. VERSED [Concomitant]
     Indication: CATHETERISATION CARDIAC
     Route: 042
     Dates: start: 20040818
  12. FENTANYL CITRATE [Concomitant]
     Indication: CATHETERISATION CARDIAC
     Route: 042
     Dates: start: 20040818
  13. LOPRESSOR [Concomitant]
     Indication: MYOCARDIAL INFARCTION
     Route: 048
     Dates: start: 20040818
  14. LIPITOR [Concomitant]
  15. CAPTOPRIL [Concomitant]
  16. PAXIL [Concomitant]
  17. PROTONIX [Concomitant]
  18. NITROGLYCERIN [Concomitant]
     Indication: CHEST PAIN
     Route: 041
     Dates: start: 20040818
  19. TYLENOL [Concomitant]
  20. AMBIEN [Concomitant]
  21. COLACE [Concomitant]
  22. DARVOCET-N [Concomitant]

REACTIONS (8)
  - AGITATION [None]
  - HAEMORRHAGE INTRACRANIAL [None]
  - HYPERGLYCAEMIA [None]
  - MENINGITIS VIRAL [None]
  - PNEUMONIA [None]
  - PULMONARY OEDEMA [None]
  - TACHYCARDIA [None]
  - TACHYPNOEA [None]
